FAERS Safety Report 4329822-2 (Version None)
Quarter: 2004Q1

REPORT INFORMATION
  Report Type: 
  Country: None (occurrence: None)
  Receive Date: 20040329
  Receipt Date: 20040218
  Transmission Date: 20041129
  Serious: Yes (Death, Life-Threatening, Hospitalization)
  Sender: FDA-Public Use
  Company Number: 2003125087

PATIENT
  Age: 83 Year
  Sex: Female

DRUGS (6)
  1. PRO-EPANUTIN (FOSPHENYTOIN SODIUM) [Suspect]
     Indication: STATUS EPILEPTICUS
     Dosage: 15 ML (50 MG/ML) (UNKNOWN), INTRAVENOUS
     Route: 042
     Dates: start: 20031126, end: 20031126
  2. HEPARIN-FRACTION, SODIUM SALT (HEPARIN-FRACTION, SODIUM SALT) [Concomitant]
  3. TRANDOLAPRIL (TRANDOLAPRIL) [Concomitant]
  4. FUROSEMIDE [Concomitant]
  5. VERAPAMIL [Concomitant]
  6. ISOPHANE INSULIN (ISOPHANE INSULIN) [Concomitant]

REACTIONS (2)
  - BLOOD PRESSURE DECREASED [None]
  - EPILEPSY [None]
